FAERS Safety Report 18262651 (Version 1)
Quarter: 2020Q3

REPORT INFORMATION
  Report Type: Other
  Country: CA (occurrence: CA)
  Receive Date: 20200914
  Receipt Date: 20200914
  Transmission Date: 20201103
  Serious: Yes (Hospitalization, Other)
  Sender: FDA-Public Use
  Company Number: CA-COVIS PHARMA B.V.-2020COV00430

PATIENT
  Age: 54 Year
  Sex: Female
  Weight: 77 kg

DRUGS (18)
  1. CLOPIDOGREL [Suspect]
     Active Substance: CLOPIDOGREL BISULFATE
     Dosage: 75 MG, 1X/DAY
  2. SINGULAIR [Concomitant]
     Active Substance: MONTELUKAST SODIUM
  3. CLARITHROMYCIN. [Suspect]
     Active Substance: CLARITHROMYCIN
     Dosage: 100 MG, 1X/DAY
  4. IMIPRAMINE HYDROCHLORIDE. [Suspect]
     Active Substance: IMIPRAMINE HYDROCHLORIDE
     Dosage: 25 MG, 2X/DAY
  5. MAVIK [Suspect]
     Active Substance: TRANDOLAPRIL
     Dosage: 2 MG, 1X/DAY
  6. PANTOPRAZOLE [Suspect]
     Active Substance: PANTOPRAZOLE
     Dosage: 40 MG, 1X/DAY
     Route: 042
  7. ALVESCO [Suspect]
     Active Substance: CICLESONIDE
     Dosage: 50 MG
     Route: 055
  8. ROSUVASTATIN CALCIUM. [Suspect]
     Active Substance: ROSUVASTATIN CALCIUM
     Dosage: 20 MG, 1X/DAY
     Route: 048
  9. ATENOLOL. [Suspect]
     Active Substance: ATENOLOL
     Dosage: 50 MG, 1X/DAY
     Route: 048
  10. DOMPERIDONE [Suspect]
     Active Substance: DOMPERIDONE
     Dosage: 10 MG, 2X/DAY
  11. USTEKINUMAB [Suspect]
     Active Substance: USTEKINUMAB
  12. AERIUS (DESLORATADINE) [Suspect]
     Active Substance: DESLORATADINE
     Dosage: 5 MG, 1X/DAY
  13. EZETROL [Suspect]
     Active Substance: EZETIMIBE
     Dosage: 10 MG, 1X/DAY
     Route: 048
  14. SULCRATE [Suspect]
     Active Substance: SUCRALFATE
     Dosage: 10 MG, 1X/DAY
  15. DETROL LA [Suspect]
     Active Substance: TOLTERODINE TARTRATE
     Dosage: 4 MG, 1X/DAY
  16. EBASTINE [Suspect]
     Active Substance: EBASTINE
     Dosage: 5 MG, 1X/DAY
     Route: 048
  17. ECOTRIN [Suspect]
     Active Substance: ASPIRIN
     Dosage: 1 DF, 1X/DAY
  18. SULCRATE [Suspect]
     Active Substance: SUCRALFATE
     Dosage: 1000 MG, 1X/DAY

REACTIONS (3)
  - Hallucination, auditory [Recovered/Resolved]
  - Paranoia [Recovered/Resolved]
  - Psychotic disorder [Recovered/Resolved]
